FAERS Safety Report 10202885 (Version 1)
Quarter: 2014Q2

REPORT INFORMATION
  Report Type: Spontaneous
  Country: US (occurrence: US)
  Receive Date: 20140522
  Receipt Date: 20140522
  Transmission Date: 20141212
  Serious: No
  Sender: FDA-Public Use
  Company Number: US-SA-2014SA041537

PATIENT
  Age: 69 Year
  Sex: Female

DRUGS (2)
  1. LANTUS SOLOSTAR [Suspect]
     Indication: TYPE 2 DIABETES MELLITUS
     Dosage: 20-25 UNITS, PRODUCT START DATE: 3 YEARS AGO
     Route: 058
     Dates: start: 2011
  2. SYMBICORT [Concomitant]
     Indication: ASTHMA

REACTIONS (3)
  - Pain [Unknown]
  - Gait disturbance [Unknown]
  - Incorrect dose administered [Unknown]
